FAERS Safety Report 4801644-5 (Version None)
Quarter: 2005Q4

REPORT INFORMATION
  Report Type: 
  Country: None (occurrence: None)
  Receive Date: 20051018
  Receipt Date: 20050808
  Transmission Date: 20060501
  Serious: Yes (Other)
  Sender: FDA-Public Use
  Company Number: PHEH2005US08823

PATIENT
  Age: 60 Year
  Sex: Female

DRUGS (2)
  1. MAXZIDE [Concomitant]
  2. FEMARA [Suspect]
     Indication: BREAST CANCER
     Dosage: 2.5 MG, QD
     Route: 048
     Dates: start: 20040517, end: 20040815

REACTIONS (9)
  - ARTHRALGIA [None]
  - BREAST CANCER RECURRENT [None]
  - MAMMOGRAM ABNORMAL [None]
  - MASTECTOMY [None]
  - MOBILITY DECREASED [None]
  - MUSCULOSKELETAL DISORDER [None]
  - RHEUMATOID ARTHRITIS [None]
  - THYROID GLAND CANCER [None]
  - THYROIDECTOMY [None]
